FAERS Safety Report 7863134-5 (Version None)
Quarter: 2011Q4

REPORT INFORMATION
  Report Type: 
  Country: None (occurrence: None)
  Receive Date: 20111027
  Receipt Date: 20101129
  Transmission Date: 20120403
  Serious: No
  Sender: FDA-Public Use
  Company Number: US-AMGEN-KDL277978

PATIENT
  Age: 29 Year
  Sex: Female

DRUGS (2)
  1. ENBREL [Suspect]
     Indication: PSORIASIS
     Dosage: 50 MG, 2 TIMES/WK
     Route: 058
     Dates: start: 20040201
  2. ENBREL [Suspect]
     Dosage: 50 MG, 2 TIMES/WK
     Dates: start: 20070709

REACTIONS (10)
  - HYPERTENSION [None]
  - PALPITATIONS [None]
  - FEELING OF BODY TEMPERATURE CHANGE [None]
  - ADVERSE DRUG REACTION [None]
  - INJECTION SITE PAIN [None]
  - SINUS CONGESTION [None]
  - INFLUENZA LIKE ILLNESS [None]
  - FEELING HOT [None]
  - ARTHRALGIA [None]
  - SINUSITIS [None]
